FAERS Safety Report 6215138-6 (Version None)
Quarter: 2009Q2

REPORT INFORMATION
  Report Type: 
  Country: None (occurrence: None)
  Receive Date: 20090604
  Receipt Date: 20090319
  Transmission Date: 20091009
  Serious: No
  Sender: FDA-Public Use
  Company Number: US-ASTRAZENECA-2009UW07097

PATIENT
  Age: 59 Year
  Sex: Male
  Weight: 77.1 kg

DRUGS (7)
  1. PRILOSEC [Suspect]
     Route: 048
  2. NEXIUM [Concomitant]
     Route: 048
  3. ATENOLOL [Concomitant]
  4. LISINOPRIL [Concomitant]
  5. SIMVASTATIN [Concomitant]
  6. ASPIRIN [Concomitant]
  7. PROTONIX [Concomitant]

REACTIONS (3)
  - DRUG INEFFECTIVE [None]
  - DYSPEPSIA [None]
  - ILL-DEFINED DISORDER [None]
